FAERS Safety Report 22049159 (Version 1)
Quarter: 2023Q1

REPORT INFORMATION
  Report Type: Spontaneous
  Country: US (occurrence: None)
  Receive Date: 20230228
  Receipt Date: 20230228
  Transmission Date: 20230417
  Serious: Yes (Disabling)
  Sender: FDA-Public Use
  Company Number: None

PATIENT
  Age: 71 Year
  Sex: Female
  Weight: 49.5 kg

DRUGS (1)
  1. KLONOPIN [Suspect]
     Active Substance: CLONAZEPAM
     Indication: Anxiety
     Dosage: OTHER QUANTITY : 1.5 TABLET(S);?FREQUENCY : 3 TIMES A DAY;?
     Route: 048

REACTIONS (32)
  - Withdrawal syndrome [None]
  - Drug ineffective [None]
  - Agitation [None]
  - Agoraphobia [None]
  - Abdominal pain [None]
  - Abdominal distension [None]
  - Food allergy [None]
  - Dissociation [None]
  - Skin burning sensation [None]
  - Muscle spasms [None]
  - Cognitive disorder [None]
  - Toothache [None]
  - Depersonalisation/derealisation disorder [None]
  - Dizziness [None]
  - Oedema [None]
  - Vision blurred [None]
  - Flushing [None]
  - Hot flush [None]
  - Migraine [None]
  - Hair disorder [None]
  - Palpitations [None]
  - Reading disorder [None]
  - Micturition urgency [None]
  - Dyspepsia [None]
  - Insomnia [None]
  - Muscular weakness [None]
  - Psychiatric symptom [None]
  - Appetite disorder [None]
  - Nausea [None]
  - Hypoaesthesia [None]
  - Rash [None]
  - Fatigue [None]

NARRATIVE: CASE EVENT DATE: 20230215
